FAERS Safety Report 6635718-3 (Version None)
Quarter: 2010Q1

REPORT INFORMATION
  Report Type: 
  Country: None (occurrence: None)
  Receive Date: 20100312
  Receipt Date: 20100312
  Transmission Date: 20100710
  Serious: Yes (Hospitalization)
  Sender: FDA-Public Use
  Company Number: None

PATIENT
  Age: 81 Year
  Sex: Female
  Weight: 64 kg

DRUGS (1)
  1. ONTAK [Suspect]
     Indication: T-CELL LYMPHOMA
     Dosage: 18 MCG/KG ONCE IV DRIP
     Route: 041
     Dates: start: 20100303, end: 20100303

REACTIONS (4)
  - ARRHYTHMIA [None]
  - BLOOD PRESSURE INCREASED [None]
  - TACHYCARDIA [None]
  - UNEVALUABLE EVENT [None]
